FAERS Safety Report 11057610 (Version 1)
Quarter: 2015Q2

REPORT INFORMATION
  Report Type: Spontaneous
  Country: US (occurrence: US)
  Receive Date: 20150422
  Receipt Date: 20150422
  Transmission Date: 20150821
  Serious: Yes (Other)
  Sender: FDA-Public Use
  Company Number: PHEH2015US007305

PATIENT
  Sex: Female

DRUGS (1)
  1. GILENYA [Suspect]
     Active Substance: FINGOLIMOD HYDROCHLORIDE
     Indication: PRODUCT USED FOR UNKNOWN INDICATION
     Route: 065

REACTIONS (6)
  - Multiple sclerosis relapse [Unknown]
  - Abasia [Recovering/Resolving]
  - Speech disorder [Recovering/Resolving]
  - Central nervous system lesion [Unknown]
  - Blindness [Recovering/Resolving]
  - Hypoaesthesia [Unknown]
